FAERS Safety Report 9129897 (Version 2)
Quarter: 2013Q1

REPORT INFORMATION
  Report Type: Spontaneous
  Country: DE (occurrence: DE)
  Receive Date: 20130228
  Receipt Date: 20130318
  Transmission Date: 20140127
  Serious: No
  Sender: FDA-Public Use
  Company Number: DE-ABBOTT-13P-062-1055675-00

PATIENT
  Sex: Male

DRUGS (1)
  1. SIXANTONE [Suspect]
     Indication: PRODUCT USED FOR UNKNOWN INDICATION

REACTIONS (1)
  - Injection site reaction [Recovered/Resolved]
